FAERS Safety Report 7458603-6 (Version None)
Quarter: 2011Q2

REPORT INFORMATION
  Report Type: 
  Country: None (occurrence: None)
  Receive Date: 20110504
  Receipt Date: 20110427
  Transmission Date: 20111010
  Serious: Yes (Life-Threatening, Hospitalization)
  Sender: FDA-Public Use
  Company Number: NL-MEDIMMUNE-MEDI-0013144

PATIENT
  Sex: Male

DRUGS (2)
  1. SYNAGIS [Suspect]
     Route: 030
     Dates: start: 20110419, end: 20110419
  2. SYNAGIS [Suspect]
     Route: 030
     Dates: start: 20101005, end: 20110322

REACTIONS (13)
  - RHINOVIRUS INFECTION [None]
  - LOWER RESPIRATORY TRACT INFECTION BACTERIAL [None]
  - ADVERSE EVENT [None]
  - CYANOSIS [None]
  - OXYGEN SATURATION DECREASED [None]
  - BLOOD GASES ABNORMAL [None]
  - TRACHEAL OBSTRUCTION [None]
  - UNRESPONSIVE TO STIMULI [None]
  - CONDITION AGGRAVATED [None]
  - DYSPNOEA [None]
  - PHARYNGEAL OEDEMA [None]
  - COLLAPSE OF LUNG [None]
  - STRIDOR [None]
